FAERS Safety Report 11613636 (Version 1)
Quarter: 2015Q4

REPORT INFORMATION
  Report Type: Spontaneous
  Country: FR (occurrence: FR)
  Receive Date: 20151008
  Receipt Date: 20151008
  Transmission Date: 20160304
  Serious: Yes (Hospitalization)
  Sender: FDA-Public Use
  Company Number: FR-GLAXOSMITHKLINE-FR2015GSK143610

PATIENT
  Age: 19 Day
  Sex: Female
  Weight: 3.3 kg

DRUGS (1)
  1. ZOVIRAX [Suspect]
     Active Substance: ACYCLOVIR
     Indication: VARICELLA
     Dosage: UNK
     Route: 042
     Dates: start: 20150920, end: 20150920

REACTIONS (2)
  - Product use issue [Unknown]
  - Catheter site erythema [Unknown]

NARRATIVE: CASE EVENT DATE: 20150920
